FAERS Safety Report 5326873-6 (Version None)
Quarter: 2007Q2

REPORT INFORMATION
  Report Type: 
  Country: None (occurrence: None)
  Receive Date: 20070511
  Receipt Date: 20070425
  Transmission Date: 20071010
  Serious: Yes (Life-Threatening, Hospitalization)
  Sender: FDA-Public Use
  Company Number: DSA_29836_2007

PATIENT
  Sex: Female

DRUGS (2)
  1. TAVOR/00279201/(TAVOR) 1 MG [Suspect]
     Dosage: (20 MG 1X ORAL)
     Route: 048
     Dates: start: 20070425, end: 20070425
  2. ALCOHOL/00002101/(ALCOHOL 11 [Suspect]
     Dosage: (1 1 1X ORAL)
     Route: 048
     Dates: start: 20070425, end: 20070425

REACTIONS (5)
  - DISORIENTATION [None]
  - HYPERTENSION [None]
  - OVERDOSE [None]
  - SUICIDE ATTEMPT [None]
  - TACHYCARDIA [None]
